FAERS Safety Report 7279678-3 (Version None)
Quarter: 2011Q1

REPORT INFORMATION
  Report Type: 
  Country: None (occurrence: None)
  Receive Date: 20110208
  Receipt Date: 20110127
  Transmission Date: 20110831
  Serious: Yes (Death, Life-Threatening, Hospitalization, Other)
  Sender: FDA-Public Use
  Company Number: JP-CELGENEUS-087-21880-11010466

PATIENT
  Sex: Female
  Weight: 38.4 kg

DRUGS (17)
  1. REVLIMID [Suspect]
     Indication: MULTIPLE MYELOMA
     Route: 048
     Dates: start: 20101203, end: 20101205
  2. REVLIMID [Suspect]
     Route: 048
     Dates: start: 20101231, end: 20110102
  3. GRAN [Suspect]
     Indication: MULTIPLE MYELOMA
     Route: 051
     Dates: start: 20101227, end: 20101227
  4. SOLU-CORTEF [Concomitant]
     Indication: MULTIPLE MYELOMA
     Route: 041
     Dates: start: 20110103, end: 20110104
  5. TAKEPRON [Concomitant]
     Indication: PROPHYLAXIS
     Route: 048
     Dates: start: 20100222, end: 20110102
  6. ASPIRIN [Concomitant]
     Indication: PROPHYLAXIS
     Route: 048
     Dates: start: 20101203, end: 20101209
  7. BIO-THREE [Concomitant]
     Indication: MULTIPLE MYELOMA
     Route: 048
     Dates: start: 20101212, end: 20101223
  8. SLOW-K [Concomitant]
     Indication: MULTIPLE MYELOMA
     Route: 048
     Dates: start: 20101220, end: 20101223
  9. ZOMETA [Concomitant]
     Indication: MULTIPLE MYELOMA
     Route: 041
     Dates: start: 20101206, end: 20101206
  10. BAKTAR [Concomitant]
     Indication: PROPHYLAXIS
     Route: 048
     Dates: start: 20100125, end: 20110102
  11. LOPEMIN [Concomitant]
     Indication: MULTIPLE MYELOMA
     Route: 048
     Dates: start: 20101221, end: 20110102
  12. REVLIMID [Suspect]
     Route: 048
     Dates: start: 20101225, end: 20101229
  13. GABAPENTIN [Concomitant]
     Indication: MULTIPLE MYELOMA
     Route: 048
     Dates: start: 20100419, end: 20110102
  14. ALBUMIN TANNATE [Concomitant]
     Indication: MULTIPLE MYELOMA
     Route: 048
     Dates: start: 20101217, end: 20110102
  15. LENADEX [Suspect]
     Indication: MULTIPLE MYELOMA
     Route: 048
     Dates: start: 20101203, end: 20101229
  16. ITRIZOLE [Concomitant]
     Indication: PROPHYLAXIS
     Route: 048
     Dates: start: 20100125, end: 20110102
  17. REVLIMID [Suspect]
     Route: 048
     Dates: start: 20101215, end: 20101223

REACTIONS (8)
  - PLATELET COUNT DECREASED [None]
  - NEUTROPENIA [None]
  - BLOOD CREATININE INCREASED [None]
  - SEPSIS [None]
  - GAIT DISTURBANCE [None]
  - NAUSEA [None]
  - HAEMATEMESIS [None]
  - SUFFOCATION FEELING [None]
